FAERS Safety Report 7565000-1 (Version None)
Quarter: 2011Q2

REPORT INFORMATION
  Report Type: 
  Country: None (occurrence: None)
  Receive Date: 20110622
  Receipt Date: 20110330
  Transmission Date: 20111010
  Serious: Yes (Death)
  Sender: FDA-Public Use
  Company Number: US-MYLANLABS-2011S1005939

PATIENT
  Age: 59 Year
  Sex: Female

DRUGS (11)
  1. COLACE [Concomitant]
  2. HYDROCHLOROTHIAZIDE [Concomitant]
  3. ASCORBIC ACID [Concomitant]
  4. CLOZAPINE [Suspect]
     Route: 048
     Dates: start: 20091001, end: 20110301
  5. FOLIC ACID [Concomitant]
  6. LEVOTHYROXINE SODIUM [Concomitant]
  7. METHOTREXATE [Concomitant]
  8. MIRALAX [Concomitant]
  9. METAMUCIL-2 [Concomitant]
  10. AGGRENOX [Concomitant]
  11. OMEPRAZOLE [Concomitant]

REACTIONS (5)
  - PANCYTOPENIA [None]
  - METABOLIC ACIDOSIS [None]
  - RENAL FAILURE ACUTE [None]
  - PNEUMONIA [None]
  - SEPSIS [None]
